FAERS Safety Report 5531000-6 (Version None)
Quarter: 2007Q4

REPORT INFORMATION
  Report Type: 
  Country: None (occurrence: None)
  Receive Date: 20071130
  Receipt Date: 20071119
  Transmission Date: 20080405
  Serious: Yes (Other)
  Sender: FDA-Public Use
  Company Number: US-PFIZER INC-2007097587

PATIENT
  Sex: Male
  Weight: 21.3 kg

DRUGS (1)
  1. ZITHROMAX [Suspect]
     Indication: PNEUMONIA
     Dates: start: 20071115, end: 20071119

REACTIONS (5)
  - ASTHMA [None]
  - BRONCHOSPASM [None]
  - COUGH [None]
  - VOMITING [None]
  - WHEEZING [None]
